FAERS Safety Report 23226581 (Version 1)
Quarter: 2023Q4

REPORT INFORMATION
  Report Type: Spontaneous
  Country: IN (occurrence: None)
  Receive Date: 20231124
  Receipt Date: 20231124
  Transmission Date: 20240110
  Serious: Yes (Life-Threatening)
  Sender: FDA-Public Use
  Company Number: 2023A267600

PATIENT
  Sex: Female
  Weight: 66 kg

DRUGS (1)
  1. BRILINTA [Suspect]
     Active Substance: TICAGRELOR
     Indication: Incorrect dose administered
     Dosage: 180.0MG AS REQUIRED
     Route: 048
     Dates: start: 20231107

REACTIONS (1)
  - Vascular stent thrombosis [Recovered/Resolved]
